FAERS Safety Report 18528021 (Version 5)
Quarter: 2021Q2

REPORT INFORMATION
  Report Type: Report from Study
  Country: CA (occurrence: CA)
  Receive Date: 20201120
  Receipt Date: 20210426
  Transmission Date: 20210717
  Serious: Yes (Other)
  Sender: FDA-Public Use
  Company Number: CA-TAKEDA-2020TUS045728

PATIENT
  Age: 64 Year
  Sex: Female

DRUGS (9)
  1. VEDOLIZUMAB [Suspect]
     Active Substance: VEDOLIZUMAB
     Dosage: 300 MILLIGRAM
     Route: 042
  2. VIT D [Concomitant]
     Active Substance: VITAMIN D NOS
     Dosage: 10000 INTERNATIONAL UNIT, 1/WEEK
  3. CALCIUM [Concomitant]
     Active Substance: CALCIUM
     Dosage: 1000 MILLIGRAM, QD
  4. IRBESARTAN. [Concomitant]
     Active Substance: IRBESARTAN
     Dosage: 100 MILLIGRAM, QD
  5. VEDOLIZUMAB [Suspect]
     Active Substance: VEDOLIZUMAB
     Indication: COLITIS ULCERATIVE
     Dosage: 300 MILLIGRAM
     Route: 042
     Dates: start: 20200910
  6. CORTISONE [Concomitant]
     Active Substance: CORTISONE
     Dosage: UNK
  7. URSODIOL. [Concomitant]
     Active Substance: URSODIOL
     Dosage: 500 GRAM
  8. VIT E [TOCOPHEROL] [Concomitant]
     Dosage: 800 INTERNATIONAL UNIT
  9. SUMATRIPTAN. [Concomitant]
     Active Substance: SUMATRIPTAN
     Dosage: 100 MILLIGRAM

REACTIONS (3)
  - Headache [Recovered/Resolved]
  - Amnesia [Unknown]
  - Herpes ophthalmic [Unknown]

NARRATIVE: CASE EVENT DATE: 20200922
